FAERS Safety Report 24760751 (Version 1)
Quarter: 2024Q4

REPORT INFORMATION
  Report Type: Report from Study
  Country: US (occurrence: US)
  Receive Date: 20241220
  Receipt Date: 20241220
  Transmission Date: 20250115
  Serious: Yes (Other)
  Sender: ABBVIE
  Company Number: US-ABBVIE-6048280

PATIENT
  Age: 50 Year
  Sex: Female

DRUGS (2)
  1. RINVOQ [Suspect]
     Active Substance: UPADACITINIB
     Indication: Dermatitis atopic
     Dosage: APRIL THROUGH JUNE PATIENT STATED STOPPED TAKING RINVOQ FROM EVENT DATE AND STARTED AGAIN IN JUNE...
     Route: 048
     Dates: end: 202404
  2. RINVOQ [Suspect]
     Active Substance: UPADACITINIB
     Indication: Dermatitis atopic
     Dosage: APRIL THROUGH JUNE PATIENT STATED STOPPED TAKING RINVOQ FROM EVENT DATE AND STARTED AGAIN IN JUNE...
     Route: 048
     Dates: start: 202406

REACTIONS (5)
  - Large intestine perforation [Recovered/Resolved]
  - Diverticulitis [Recovered/Resolved]
  - Anxiety [Unknown]
  - Dermatitis atopic [Not Recovered/Not Resolved]
  - Malabsorption [Unknown]

NARRATIVE: CASE EVENT DATE: 20240101
